FAERS Safety Report 8190290-4 (Version None)
Quarter: 2012Q1

REPORT INFORMATION
  Report Type: 
  Country: None (occurrence: None)
  Receive Date: 20120305
  Receipt Date: 20120223
  Transmission Date: 20120608
  Serious: Yes (Hospitalization, Other)
  Sender: FDA-Public Use
  Company Number: 1205136

PATIENT
  Sex: Male

DRUGS (2)
  1. LIDOCAINE HCL [Suspect]
     Indication: PRODUCT USED FOR UNKNOWN INDICATION
     Dosage: INJECTION
     Dates: start: 20120221
  2. (CORTICOSTEROIDS) [Concomitant]

REACTIONS (3)
  - PRODUCT FORMULATION ISSUE [None]
  - SOFT TISSUE NECROSIS [None]
  - VASCULAR INJURY [None]
